FAERS Safety Report 25357893 (Version 1)
Quarter: 2025Q2

REPORT INFORMATION
  Report Type: Other
  Country: BE (occurrence: BE)
  Receive Date: 20250526
  Receipt Date: 20250526
  Transmission Date: 20250716
  Serious: Yes (Other)
  Sender: ESJAY PHARMA
  Company Number: BE-ESJAY PHARMA-000660

PATIENT
  Age: 20 Year
  Sex: Female

DRUGS (6)
  1. METHYLPHENIDATE HYDROCHLORIDE [Suspect]
     Active Substance: METHYLPHENIDATE HYDROCHLORIDE
     Indication: Attention deficit hyperactivity disorder
  2. ETHINYL ESTRADIOL [Concomitant]
     Active Substance: ETHINYL ESTRADIOL
     Indication: Hormonal contraception
  3. DIENOGEST [Concomitant]
     Active Substance: DIENOGEST
     Indication: Hormonal contraception
  4. NOMEGESTROL [Concomitant]
     Active Substance: NOMEGESTROL
     Indication: Hormonal contraception
  5. ESTRADIOL [Concomitant]
     Active Substance: ESTRADIOL
     Indication: Hormonal contraception
  6. QUETIAPINE [Concomitant]
     Active Substance: QUETIAPINE
     Indication: Insomnia

REACTIONS (1)
  - Uterine haemorrhage [Recovered/Resolved]
